FAERS Safety Report 7968462-0 (Version None)
Quarter: 2011Q4

REPORT INFORMATION
  Report Type: 
  Country: None (occurrence: None)
  Receive Date: 20111209
  Receipt Date: 20111206
  Transmission Date: 20120403
  Serious: Yes (Death)
  Sender: FDA-Public Use
  Company Number: US-ELI_LILLY_AND_COMPANY-US201110002241

PATIENT
  Sex: Female
  Weight: 61.678 kg

DRUGS (2)
  1. GEMZAR [Suspect]
     Indication: NON-SMALL CELL LUNG CANCER
     Dosage: 1610MG, ON DAY 1 AND DAY 8, EVERY 21 DAYS
     Route: 042
     Dates: start: 20101028, end: 20110201
  2. TAXOTERE [Concomitant]

REACTIONS (1)
  - NEOPLASM PROGRESSION [None]
